FAERS Safety Report 8020667-9 (Version None)
Quarter: 2012Q1

REPORT INFORMATION
  Report Type: 
  Country: None (occurrence: None)
  Receive Date: 20120103
  Receipt Date: 20111222
  Transmission Date: 20120608
  Serious: Yes (Other)
  Sender: FDA-Public Use
  Company Number: US-ASTRAZENECA-2011SE77754

PATIENT
  Age: 75 Year
  Sex: Male
  Weight: 103.4 kg

DRUGS (4)
  1. LATANOPROST [Suspect]
     Route: 065
  2. AMLODIPINE BESYLATE [Suspect]
     Route: 065
  3. ATENOLOL [Suspect]
     Route: 065
  4. QUINAPRIL HYDROCHLORIDE [Suspect]
     Indication: HYPERTENSION
     Route: 065

REACTIONS (2)
  - RASH ERYTHEMATOUS [None]
  - DRUG HYPERSENSITIVITY [None]
